FAERS Safety Report 24780419 (Version 1)
Quarter: 2024Q4

REPORT INFORMATION
  Report Type: Spontaneous
  Country: US (occurrence: US)
  Receive Date: 20241227
  Receipt Date: 20241227
  Transmission Date: 20250115
  Serious: Yes (Other)
  Sender: CHIESI
  Company Number: US-CHIESI-2024CHF08313

PATIENT
  Sex: Female
  Weight: 55.193 kg

DRUGS (1)
  1. FILSUVEZ [Suspect]
     Active Substance: BIRCH TRITERPENES
     Indication: Epidermolysis bullosa
     Dosage: UNK UNK, PRN
     Route: 061
     Dates: start: 20241105

REACTIONS (1)
  - Wound decomposition [Recovering/Resolving]
